FAERS Safety Report 12020284 (Version 2)
Quarter: 2017Q1

REPORT INFORMATION
  Report Type: Report from Study
  Country: MK (occurrence: MK)
  Receive Date: 20160206
  Receipt Date: 20170316
  Transmission Date: 20170428
  Serious: Yes (Congenital Anomaly, Other)
  Sender: FDA-Public Use
  Company Number: MK-SUN PHARMACEUTICAL INDUSTRIES LTD-2016R1-111038

PATIENT
  Sex: Female

DRUGS (2)
  1. FOLAN [Concomitant]
     Active Substance: FOLIC ACID
     Indication: SUPPLEMENTATION THERAPY
     Dosage: UNK
     Route: 064
  2. VALPROIC ACID. [Suspect]
     Active Substance: VALPROIC ACID
     Indication: EPILEPSY
     Dosage: 600 MG, DAILY
     Route: 064

REACTIONS (2)
  - Meningomyelocele [Unknown]
  - Foetal exposure during pregnancy [Unknown]
